FAERS Safety Report 5995378-1 (Version None)
Quarter: 2008Q4

REPORT INFORMATION
  Report Type: 
  Country: None (occurrence: None)
  Receive Date: 20081212
  Receipt Date: 20081201
  Transmission Date: 20090506
  Serious: Yes (Other)
  Sender: FDA-Public Use
  Company Number: GB-TEVA-181905ISR

PATIENT
  Age: 30 Year
  Sex: Male
  Weight: 132 kg

DRUGS (1)
  1. BACLOFEN [Suspect]
     Indication: BACK PAIN
     Route: 048
     Dates: start: 20081008, end: 20081112

REACTIONS (3)
  - AGITATION [None]
  - HALLUCINATION [None]
  - PARANOIA [None]
